FAERS Safety Report 19887859 (Version 1)
Quarter: 2021Q3

REPORT INFORMATION
  Report Type: Report from Study
  Country: US (occurrence: US)
  Receive Date: 20210928
  Receipt Date: 20210928
  Transmission Date: 20211014
  Serious: Yes (Hospitalization, Other)
  Sender: FDA-Public Use
  Company Number: US-JNJFOC-20210935510

PATIENT
  Age: 78 Year
  Sex: Female

DRUGS (1)
  1. MACITENTAN [Suspect]
     Active Substance: MACITENTAN
     Indication: PULMONARY ARTERIAL HYPERTENSION
     Route: 048
     Dates: start: 20190123

REACTIONS (4)
  - Cerebrovascular accident [Unknown]
  - Dizziness [Unknown]
  - Kidney infection [Unknown]
  - Fall [Unknown]

NARRATIVE: CASE EVENT DATE: 20210907
